FAERS Safety Report 8361244-X (Version None)
Quarter: 2012Q2

REPORT INFORMATION
  Report Type: 
  Country: None (occurrence: None)
  Receive Date: 20120515
  Receipt Date: 20120430
  Transmission Date: 20120825
  Serious: Yes (Other)
  Sender: FDA-Public Use
  Company Number: KR-ROCHE-1065892

PATIENT

DRUGS (3)
  1. AVASTIN [Suspect]
     Indication: BREAST CANCER
     Route: 065
  2. DOCETAXEL [Suspect]
     Indication: BREAST CANCER
     Route: 065
  3. CARBOPLATIN [Suspect]
     Indication: BREAST CANCER
     Dosage: DOSE: AUC 5
     Route: 065

REACTIONS (9)
  - THROMBOCYTOPENIA [None]
  - VOMITING [None]
  - FEBRILE NEUTROPENIA [None]
  - NAUSEA [None]
  - ALANINE AMINOTRANSFERASE INCREASED [None]
  - ANAEMIA [None]
  - IMPAIRED HEALING [None]
  - NEUTROPENIA [None]
  - MUCOSAL INFLAMMATION [None]
